FAERS Safety Report 5029079-3 (Version None)
Quarter: 2006Q2

REPORT INFORMATION
  Report Type: 
  Country: None (occurrence: None)
  Receive Date: 20060613
  Receipt Date: 20060526
  Transmission Date: 20061013
  Serious: Yes (Hospitalization, Other)
  Sender: FDA-Public Use
  Company Number: 221307

PATIENT
  Age: 66 Year
  Sex: Female
  Weight: 68 kg

DRUGS (6)
  1. BEVACIZUMAB OR PLACEBO(BEVACIZUMAB) [Suspect]
     Indication: NON-SMALL CELL LUNG CANCER
     Dosage: 15 MG/KG, Q3W , INTRAVENOUS
     Route: 042
     Dates: start: 20050719, end: 20051216
  2. CISPLATIN [Suspect]
     Indication: NON-SMALL CELL LUNG CANCER
     Dosage: 80 MG/M2, Q3W, INTRAVENOUS  ; 71.2 MG, Q3W
     Route: 042
     Dates: start: 20050719
  3. CISPLATIN [Suspect]
     Indication: NON-SMALL CELL LUNG CANCER
     Dosage: 80 MG/M2, Q3W, INTRAVENOUS  ; 71.2 MG, Q3W
     Route: 042
     Dates: start: 20051005
  4. GEMCITABINE [Suspect]
     Indication: NON-SMALL CELL LUNG CANCER
     Dosage: 1260 MG/M2, INTRAVENOUS
     Route: 042
     Dates: start: 20050719
  5. INDAPAMIDE [Concomitant]
  6. ATENOLOL [Concomitant]

REACTIONS (5)
  - ACTIVATED PARTIAL THROMBOPLASTIN TIME PROLONGED [None]
  - APHASIA [None]
  - BLOOD PRESSURE INCREASED [None]
  - ENCEPHALOPATHY [None]
  - THROMBOCYTOPENIA [None]
